FAERS Safety Report 12786425 (Version 1)
Quarter: 2016Q3

REPORT INFORMATION
  Report Type: Spontaneous
  Country: US (occurrence: US)
  Receive Date: 20160927
  Receipt Date: 20160927
  Transmission Date: 20161109
  Serious: No
  Sender: FDA-Public Use
  Company Number: US-FRI-1000084487

PATIENT
  Age: 45 Year
  Sex: Female
  Weight: 41.27 kg

DRUGS (4)
  1. CERTRALINE [Concomitant]
     Indication: IRRITABLE BOWEL SYNDROME
     Dosage: 50 MG
  2. MULITVITAMIN [Concomitant]
     Dosage: UNK
  3. TRETINOIN. [Concomitant]
     Active Substance: TRETINOIN
     Indication: CHLOASMA
     Dosage: UNK
     Route: 061
  4. LINZESS [Suspect]
     Active Substance: LINACLOTIDE
     Indication: IRRITABLE BOWEL SYNDROME
     Dosage: 290 ?G, QD
     Route: 048

REACTIONS (2)
  - Drug ineffective [Not Recovered/Not Resolved]
  - Nausea [Not Recovered/Not Resolved]

NARRATIVE: CASE EVENT DATE: 20160416
